FAERS Safety Report 5097874-0 (Version None)
Quarter: 2006Q3

REPORT INFORMATION
  Report Type: 
  Country: None (occurrence: None)
  Receive Date: 20060905
  Receipt Date: 20060825
  Transmission Date: 20061208
  Serious: Yes (Life-Threatening, Hospitalization, Disabling)
  Sender: FDA-Public Use
  Company Number: 112262ISR

PATIENT
  Age: 83 Year
  Sex: Female

DRUGS (3)
  1. PREDNISOLONE [Suspect]
     Indication: POLYMYALGIA RHEUMATICA
  2. FELODIPINE [Concomitant]
  3. URSODEOXYCHOLIC ACID [Concomitant]

REACTIONS (2)
  - ASPERGILLOSIS [None]
  - SINUSITIS [None]
